FAERS Safety Report 11595906 (Version 1)
Quarter: 2015Q4

REPORT INFORMATION
  Report Type: Spontaneous
  Country: AU (occurrence: AU)
  Receive Date: 20151006
  Receipt Date: 20151006
  Transmission Date: 20160304
  Serious: Yes (Life-Threatening, Hospitalization)
  Sender: FDA-Public Use
  Company Number: AU-UNICHEM LABORATORIES LIMITED-UCM201506-000415

PATIENT
  Age: 47 Year
  Sex: Male

DRUGS (3)
  1. CLONIDINE HCL [Suspect]
     Active Substance: CLONIDINE HYDROCHLORIDE
     Route: 048
  2. CLONIDINE HCL [Suspect]
     Active Substance: CLONIDINE HYDROCHLORIDE
  3. CLONIDINE HCL [Suspect]
     Active Substance: CLONIDINE HYDROCHLORIDE
     Indication: BACK PAIN
     Route: 037

REACTIONS (4)
  - Off label use [Unknown]
  - Drug withdrawal syndrome [Unknown]
  - Hypertensive crisis [Recovered/Resolved]
  - Stress cardiomyopathy [Recovered/Resolved]
